FAERS Safety Report 6202523-1 (Version None)
Quarter: 2009Q2

REPORT INFORMATION
  Report Type: 
  Country: None (occurrence: None)
  Receive Date: 20090521
  Receipt Date: 20090521
  Transmission Date: 20091009
  Serious: Yes (Other)
  Sender: FDA-Public Use
  Company Number: None

PATIENT
  Age: 28 Year
  Sex: Female
  Weight: 87.9978 kg

DRUGS (4)
  1. LAMICTAL [Suspect]
     Indication: BIPOLAR DISORDER
     Dosage: 100MG DAILY PO
     Route: 048
     Dates: start: 20090327, end: 20090517
  2. LAMICTAL [Suspect]
     Indication: DEPRESSION
     Dosage: 100MG DAILY PO
     Route: 048
     Dates: start: 20090327, end: 20090517
  3. METFORMIN HCL [Concomitant]
  4. YASMIN [Concomitant]

REACTIONS (2)
  - DRUG EXPOSURE DURING PREGNANCY [None]
  - PREGNANCY ON ORAL CONTRACEPTIVE [None]
